FAERS Safety Report 9219332 (Version 1)
Quarter: 2013Q2

REPORT INFORMATION
  Report Type: Spontaneous
  Country: US (occurrence: None)
  Receive Date: 20130408
  Receipt Date: 20130408
  Transmission Date: 20140414
  Serious: Yes (Death)
  Sender: FDA-Public Use
  Company Number: None

PATIENT
  Age: 41 Year
  Sex: Male
  Weight: 70.31 kg

DRUGS (1)
  1. ADDERALL [Suspect]
     Indication: DISTURBANCE IN ATTENTION
     Route: 048
     Dates: start: 20110629, end: 20110705

REACTIONS (4)
  - Completed suicide [None]
  - Gun shot wound [None]
  - Mania [None]
  - Feeling abnormal [None]
